FAERS Safety Report 11844615 (Version 1)
Quarter: 2015Q4

REPORT INFORMATION
  Report Type: Spontaneous
  Country: US (occurrence: US)
  Receive Date: 20151217
  Receipt Date: 20151217
  Transmission Date: 20160305
  Serious: Yes (Hospitalization)
  Sender: FDA-Public Use
  Company Number: US-SMITH AND NEPHEW, INC-2015SMT00599

PATIENT
  Sex: Female
  Weight: 58.96 kg

DRUGS (4)
  1. REGRANEX [Suspect]
     Active Substance: BECAPLERMIN
     Indication: WOUND
     Dosage: UNK UNK, TWICE
     Route: 061
     Dates: start: 201510, end: 201510
  2. INSULIN SHOTS [Concomitant]
     Dosage: UNK, 1X/DAY
  3. UNSPECIFIED HIGH BLOOD PRESSURE PILL [Concomitant]
     Dosage: UNK
  4. 5-6 UNSPECIFIED MEDICINES FOR DIABETES [Concomitant]
     Indication: DIABETES MELLITUS
     Dosage: UNK

REACTIONS (2)
  - Gangrene [Recovered/Resolved with Sequelae]
  - Toe amputation [Recovered/Resolved with Sequelae]

NARRATIVE: CASE EVENT DATE: 2015
